FAERS Safety Report 17256694 (Version 1)
Quarter: 2020Q1

REPORT INFORMATION
  Report Type: Report from Study
  Country: US (occurrence: US)
  Receive Date: 20200110
  Receipt Date: 20200110
  Transmission Date: 20200409
  Serious: Yes (Death, Other)
  Sender: FDA-Public Use
  Company Number: US-ADAMAS PHARMA, LLC-2019ADA03008

PATIENT
  Age: 75 Year
  Sex: Female

DRUGS (5)
  1. CORTIZONE 10 [Concomitant]
     Active Substance: HYDROCORTISONE
  2. ASPIRIN. [Concomitant]
     Active Substance: ASPIRIN
  3. GOCOVRI [Suspect]
     Active Substance: AMANTADINE
     Dosage: 274 MG, 1X/DAY AT BEDTIME
     Route: 048
     Dates: start: 20191220
  4. GOCOVRI [Suspect]
     Active Substance: AMANTADINE
     Indication: DYSKINESIA
     Dosage: 137 MG, 1X/DAY AT BEDTIME
     Route: 048
     Dates: start: 20191213, end: 20191219
  5. UNSPECIFIED LEVODOPA-BASED THERAPY [Concomitant]
     Active Substance: LEVODOPA

REACTIONS (9)
  - Drug ineffective [Unknown]
  - Hospice care [Not Recovered/Not Resolved]
  - Tremor [Unknown]
  - Dysphagia [Unknown]
  - Diverticulum [Unknown]
  - Fall [Unknown]
  - Parkinson^s disease [Unknown]
  - Seizure [Unknown]
  - Death [Fatal]

NARRATIVE: CASE EVENT DATE: 20190103
